FAERS Safety Report 25362425 (Version 1)
Quarter: 2025Q2

REPORT INFORMATION
  Report Type: Spontaneous
  Country: GB (occurrence: GB)
  Receive Date: 20250527
  Receipt Date: 20250527
  Transmission Date: 20250717
  Serious: Yes (Other)
  Sender: DR REDDYS
  Company Number: None

PATIENT
  Sex: Female
  Weight: 60 kg

DRUGS (3)
  1. SUMATRIPTAN [Suspect]
     Active Substance: SUMATRIPTAN
     Indication: Migraine
  2. URSODIOL [Concomitant]
     Active Substance: URSODIOL
     Indication: Product used for unknown indication
  3. LEVOTHYROXINE [Concomitant]
     Active Substance: LEVOTHYROXINE
     Indication: Product used for unknown indication

REACTIONS (17)
  - Heart rate decreased [Recovered/Resolved]
  - Bradykinesia [Recovered/Resolved]
  - Disorientation [Recovered/Resolved]
  - Muscular weakness [Recovered/Resolved]
  - Visual impairment [Not Recovered/Not Resolved]
  - Euphoric mood [Recovered/Resolved]
  - Fatigue [Not Recovered/Not Resolved]
  - Diarrhoea [Not Recovered/Not Resolved]
  - Disinhibition [Recovered/Resolved]
  - Autoscopy [Recovered/Resolved]
  - Migraine [Not Recovered/Not Resolved]
  - Slow speech [Recovered/Resolved]
  - Nightmare [Recovered/Resolved]
  - Dizziness [Recovered/Resolved]
  - Somnolence [Recovered/Resolved]
  - Nausea [Recovered/Resolved]
  - Dehydration [Recovering/Resolving]
